FAERS Safety Report 8033237-3 (Version None)
Quarter: 2012Q1

REPORT INFORMATION
  Report Type: 
  Country: None (occurrence: None)
  Receive Date: 20120110
  Receipt Date: 20120103
  Transmission Date: 20120608
  Serious: Yes (Hospitalization)
  Sender: FDA-Public Use
  Company Number: US-BAYER-2011-034582

PATIENT
  Age: 16 Year
  Sex: Female
  Weight: 59.41 kg

DRUGS (8)
  1. DROSPIRENONE AND ETHINYL ESTRADIOL [Suspect]
     Dosage: UNK
     Dates: start: 20081101, end: 20090618
  2. YAZ [Suspect]
     Dosage: UNK UNK, QD
     Dates: start: 20081101, end: 20090618
  3. LOESTRIN FE 1/20 [Concomitant]
  4. IBUPROFEN (ADVIL) [Concomitant]
     Indication: HEADACHE
     Dosage: 400 MG, UNK
  5. ACETAMINOPHEN [Concomitant]
     Indication: HEADACHE
     Dosage: 400 MG, UNK
  6. EXTRA STRENGTH TYLENOL [Concomitant]
     Dosage: 500 MG, PRN
  7. YASMIN [Suspect]
     Dosage: UNK
     Dates: start: 20081101, end: 20090618
  8. ROCEPHIN [Concomitant]
     Indication: URINARY TRACT INFECTION

REACTIONS (7)
  - LIMB DISCOMFORT [None]
  - ANHEDONIA [None]
  - CHEST PAIN [None]
  - ANXIETY [None]
  - INJURY [None]
  - PULMONARY EMBOLISM [None]
  - SWELLING [None]
